FAERS Safety Report 5258550-4 (Version None)
Quarter: 2007Q1

REPORT INFORMATION
  Report Type: 
  Country: None (occurrence: None)
  Receive Date: 20070308
  Receipt Date: 20070306
  Transmission Date: 20070707
  Serious: Yes (Hospitalization)
  Sender: FDA-Public Use
  Company Number: US-BRISTOL-MYERS SQUIBB COMPANY-13702238

PATIENT
  Age: 86 Year
  Sex: Male
  Weight: 101 kg

DRUGS (6)
  1. COUMADIN [Suspect]
     Indication: DEEP VEIN THROMBOSIS
     Route: 048
     Dates: start: 20070131, end: 20070201
  2. CANGRELOR [Suspect]
     Route: 040
     Dates: start: 20070130, end: 20070130
  3. PLACEBO [Suspect]
  4. CLOPIDOGREL BISULFATE [Suspect]
     Dosage: ALSO RECEIVED;4CAP;@1600
     Route: 048
     Dates: start: 20070130, end: 20070130
  5. PLACEBO [Suspect]
  6. LOVENOX [Suspect]
     Indication: DEEP VEIN THROMBOSIS
     Route: 058
     Dates: start: 20070131, end: 20070201

REACTIONS (1)
  - HOSPITALISATION [None]
